FAERS Safety Report 7377670-1 (Version None)
Quarter: 2011Q1

REPORT INFORMATION
  Report Type: 
  Country: None (occurrence: None)
  Receive Date: 20110328
  Receipt Date: 20110316
  Transmission Date: 20110831
  Serious: Yes (Other)
  Sender: FDA-Public Use
  Company Number: PHHY2011BR23097

PATIENT
  Age: 31 Year
  Sex: Male

DRUGS (1)
  1. PARLODEL [Suspect]
     Indication: PITUITARY TUMOUR RECURRENT
     Dosage: 2.5 MG, DAILY
     Dates: start: 20101001

REACTIONS (6)
  - ANOSMIA [None]
  - AGEUSIA [None]
  - FEELING ABNORMAL [None]
  - VISION BLURRED [None]
  - CARDIAC ARREST [None]
  - GAIT DISTURBANCE [None]
